FAERS Safety Report 6251421-6 (Version None)
Quarter: 2009Q2

REPORT INFORMATION
  Report Type: 
  Country: None (occurrence: None)
  Receive Date: 20090630
  Receipt Date: 20090624
  Transmission Date: 20091009
  Serious: Yes (Hospitalization)
  Sender: FDA-Public Use
  Company Number: GB-MERCK-0906GBR00018

PATIENT
  Age: 91 Year
  Sex: Female
  Weight: 77 kg

DRUGS (12)
  1. COZAAR [Suspect]
     Indication: HYPERTENSION
     Route: 048
  2. FUROSEMIDE [Concomitant]
     Indication: OEDEMA
     Route: 065
     Dates: end: 20090529
  3. FUROSEMIDE [Concomitant]
     Indication: MYOCARDIAL ISCHAEMIA
     Route: 065
     Dates: end: 20090529
  4. BENDROFLUMETHIAZIDE [Concomitant]
     Indication: HYPERTENSION
     Route: 065
     Dates: end: 20090529
  5. ASPIRIN [Concomitant]
     Indication: ANTIPLATELET THERAPY
     Route: 065
  6. ASPIRIN [Concomitant]
     Indication: MYOCARDIAL ISCHAEMIA
     Route: 065
  7. ATENOLOL [Concomitant]
     Indication: HYPERTENSION
     Route: 065
  8. ATENOLOL [Concomitant]
     Indication: MYOCARDIAL ISCHAEMIA
     Route: 065
  9. SIMVASTATIN [Concomitant]
     Indication: BLOOD CHOLESTEROL INCREASED
     Route: 065
  10. AMLODIPINE [Concomitant]
     Indication: HYPERTENSION
     Route: 065
     Dates: end: 20090529
  11. ZOPICLONE [Concomitant]
     Indication: SEDATION
     Route: 065
  12. LEVOTHYROXINE SODIUM [Concomitant]
     Route: 065

REACTIONS (4)
  - HAEMATOCRIT DECREASED [None]
  - HYPOKALAEMIA [None]
  - HYPONATRAEMIA [None]
  - SUICIDE ATTEMPT [None]
